FAERS Safety Report 19749287 (Version 4)
Quarter: 2022Q2

REPORT INFORMATION
  Report Type: Report from Study
  Country: GB (occurrence: GB)
  Receive Date: 20210826
  Receipt Date: 20220421
  Transmission Date: 20220721
  Serious: Yes (Hospitalization)
  Sender: FDA-Public Use
  Company Number: GB-NOVARTISPH-NVSC2021GB184562

PATIENT
  Age: 75 Year
  Sex: Female
  Weight: 106 kg

DRUGS (2)
  1. ERELZI [Suspect]
     Active Substance: ETANERCEPT-SZZS
     Indication: Rheumatoid arthritis
     Dosage: UNK
     Route: 058
     Dates: start: 20180715, end: 202005
  2. METHOTREXATE [Concomitant]
     Active Substance: METHOTREXATE
     Indication: Product used for unknown indication
     Dosage: UNK
     Route: 065
     Dates: start: 20120915

REACTIONS (10)
  - Urethral caruncle [Unknown]
  - Vaginal haemorrhage [Recovered/Resolved]
  - Atrophic vulvovaginitis [Unknown]
  - Iron deficiency anaemia [Unknown]
  - Lower respiratory tract infection [Unknown]
  - Arthritis bacterial [Unknown]
  - Arthralgia [Unknown]
  - Joint swelling [Unknown]
  - Cellulitis [Unknown]
  - Oedema [Unknown]

NARRATIVE: CASE EVENT DATE: 20200501
